FAERS Safety Report 20423457 (Version 2)
Quarter: 2022Q2

REPORT INFORMATION
  Report Type: Spontaneous
  Country: US (occurrence: US)
  Receive Date: 20220203
  Receipt Date: 20220425
  Transmission Date: 20220720
  Serious: No
  Sender: FDA-Public Use
  Company Number: US-PFIZER INC-2021702548

PATIENT
  Age: 68 Year
  Sex: Female
  Weight: 118.8 kg

DRUGS (2)
  1. CELECOXIB [Suspect]
     Active Substance: CELECOXIB
     Dosage: UNK
     Route: 048
  2. FESOTERODINE [Concomitant]
     Active Substance: FESOTERODINE
     Dosage: 4 MG, DAILY (QDAY DISPENSE #90 TAB)
     Route: 048

REACTIONS (1)
  - Drug hypersensitivity [Unknown]
